FAERS Safety Report 25429503 (Version 4)
Quarter: 2025Q4

REPORT INFORMATION
  Report Type: Spontaneous
  Country: BR (occurrence: BR)
  Receive Date: 20250612
  Receipt Date: 20251106
  Transmission Date: 20260118
  Serious: Yes (Life-Threatening, Other)
  Sender: ALEXION PHARMACEUTICALS
  Company Number: BR-AstraZeneca-CH-00888392A

PATIENT
  Age: 49 Year
  Sex: Male

DRUGS (2)
  1. SYMBICORT [Suspect]
     Active Substance: BUDESONIDE\FORMOTEROL FUMARATE DIHYDRATE
     Dosage: UNK
     Route: 065
  2. Alenia [Concomitant]
     Dosage: UNK
     Route: 065

REACTIONS (3)
  - Asthma [Unknown]
  - Drug ineffective [Unknown]
  - Device delivery system issue [Unknown]
